FAERS Safety Report 9146182 (Version 1)
Quarter: 2013Q1

REPORT INFORMATION
  Report Type: Spontaneous
  Country: US (occurrence: None)
  Receive Date: 20130213
  Receipt Date: 20130213
  Transmission Date: 20140127
  Serious: Yes (Hospitalization)
  Sender: FDA-Public Use
  Company Number: QSC-2013-0029

PATIENT
  Age: 70 Year
  Sex: Male
  Weight: 96.5 kg

DRUGS (13)
  1. H.P. ACTHAR GEL (ADRENOCORTICOTROPIC HORMONE) GEL FOR INJECTION, 80U/ML [Suspect]
     Dosage: 80 UNITS, BIW, SUBCUTANEOUS
     Route: 058
  2. ALLOPURINOL [Concomitant]
  3. ASPIRIN (ACETYLSALICYLIC ACID) [Concomitant]
  4. ATORVASTATIN (ATORVASTATIN) [Concomitant]
  5. AVAPRO (IRBESARTAN) [Concomitant]
  6. COLCHICINE (COLCHICINE) [Concomitant]
  7. DEPAKOTE (VALPROATE SEMISODIUM) [Concomitant]
  8. LABETALOL (LABETALOL) [Concomitant]
  9. MINOXIDIL (MINOXIDIL) [Concomitant]
  10. NORVASC (AMLODIPINE BESILATE) [Concomitant]
  11. TRIAMTERENE AND HYDROCHLOROTHIAZIDE (HYDROCHLOROTHIAZIDE, TRIAMTERENE) [Concomitant]
  12. VITAMIN D3 (COLECALCIFEROL) [Concomitant]
  13. CENTRUM (MINERAL NOS, VITAMINS NOS) [Concomitant]

REACTIONS (2)
  - Pulmonary oedema [None]
  - Hypertension [None]
